APPROVED DRUG PRODUCT: PEMFEXY
Active Ingredient: PEMETREXED
Strength: 500MG/20ML (25MG/ML)
Dosage Form/Route: SOLUTION;INTRAVENOUS
Application: N209472 | Product #001
Applicant: EAGLE PHARMACEUTICALS INC
Approved: Feb 8, 2020 | RLD: Yes | RS: Yes | Type: RX

PATENTS:
Patent 12115164 | Expires: Feb 19, 2036
Patent 12115164 | Expires: Feb 19, 2036
Patent 12115164 | Expires: Feb 19, 2036
Patent 11793813 | Expires: Feb 19, 2036
Patent 9604990 | Expires: Oct 28, 2035